FAERS Safety Report 5035474-9 (Version None)
Quarter: 2006Q2

REPORT INFORMATION
  Report Type: 
  Country: None (occurrence: None)
  Receive Date: 20060525
  Receipt Date: 20060131
  Transmission Date: 20061013
  Serious: No
  Sender: FDA-Public Use
  Company Number: S06-USA-00345-01

PATIENT
  Age: 30 Year
  Sex: Female

DRUGS (2)
  1. CAMPRAL [Suspect]
     Indication: ALCOHOLISM
     Dosage: 666 MG TID PO
     Route: 048
     Dates: start: 20060110
  2. GEODON [Concomitant]

REACTIONS (1)
  - FATIGUE [None]
